FAERS Safety Report 8498796-5 (Version None)
Quarter: 2012Q3

REPORT INFORMATION
  Report Type: 
  Country: None (occurrence: None)
  Receive Date: 20120709
  Receipt Date: 20120615
  Transmission Date: 20120928
  Serious: Yes (Death, Other)
  Sender: FDA-Public Use
  Company Number: PHHY2012IN019538

PATIENT
  Sex: Female

DRUGS (1)
  1. IMATINIB MESYLATE [Suspect]
     Indication: CHRONIC MYELOID LEUKAEMIA
     Dosage: 800 MG, UNK

REACTIONS (8)
  - FURUNCLE [None]
  - STOMATITIS [None]
  - COMA [None]
  - BLAST CRISIS IN MYELOGENOUS LEUKAEMIA [None]
  - DRUG RESISTANCE [None]
  - DEATH [None]
  - ALOPECIA [None]
  - GENERAL PHYSICAL HEALTH DETERIORATION [None]
